FAERS Safety Report 7407318-9 (Version None)
Quarter: 2011Q2

REPORT INFORMATION
  Report Type: 
  Country: None (occurrence: None)
  Receive Date: 20110411
  Receipt Date: 20110406
  Transmission Date: 20111010
  Serious: Yes (Life-Threatening)
  Sender: FDA-Public Use
  Company Number: FR-ASTRAZENECA-2011SE19913

PATIENT
  Sex: Female

DRUGS (4)
  1. PROPOFOL [Concomitant]
     Dates: start: 20110301
  2. XYLOCAINE [Suspect]
     Route: 042
     Dates: start: 20110301, end: 20110301
  3. SUFENTA PRESERVATIVE FREE [Suspect]
     Route: 042
     Dates: start: 20110301, end: 20110301
  4. TRACRIUM [Suspect]
     Route: 042
     Dates: start: 20110301, end: 20110301

REACTIONS (1)
  - SHOCK [None]
